FAERS Safety Report 11830685 (Version 1)
Quarter: 2015Q4

REPORT INFORMATION
  Report Type: Report from Study
  Country: FR (occurrence: FR)
  Receive Date: 20151214
  Receipt Date: 20151214
  Transmission Date: 20160305
  Serious: Yes (Other)
  Sender: FDA-Public Use
  Company Number: FR-ROCHE-1670005

PATIENT

DRUGS (2)
  1. RITUXIMAB [Suspect]
     Active Substance: RITUXIMAB
     Indication: NEPHROPATHY
  2. RITUXIMAB [Suspect]
     Active Substance: RITUXIMAB
     Indication: CRYOGLOBULINAEMIA
     Dosage: ONE COURSE WAS CONSIDERED A REGIMEN OF 4 CONSECUTIVE WEEKLY.
     Route: 042

REACTIONS (15)
  - Nervous system disorder [Unknown]
  - Face oedema [Unknown]
  - Chest pain [Unknown]
  - Pyrexia [Unknown]
  - Serum sickness [Unknown]
  - Hypertension [Unknown]
  - Hypotension [Unknown]
  - Cerebrovascular accident [Unknown]
  - Back pain [Unknown]
  - Renal disorder [Unknown]
  - Chills [Unknown]
  - Lymphopenia [Unknown]
  - Bronchospasm [Unknown]
  - Neutropenia [Unknown]
  - Off label use [Unknown]
